FAERS Safety Report 8021998-9 (Version None)
Quarter: 2012Q1

REPORT INFORMATION
  Report Type: 
  Country: None (occurrence: None)
  Receive Date: 20120104
  Receipt Date: 20111223
  Transmission Date: 20120608
  Serious: Yes (Hospitalization, Other)
  Sender: FDA-Public Use
  Company Number: US-ELI_LILLY_AND_COMPANY-US201005007199

PATIENT
  Sex: Female

DRUGS (6)
  1. FORTEO [Suspect]
     Indication: OSTEOPOROSIS
     Dosage: 20 UG, DAILY (1/D)
     Route: 065
     Dates: start: 20100520
  2. FORTEO [Suspect]
     Dosage: 20 UG, QD
     Route: 065
  3. FORTEO [Suspect]
     Dosage: 20 UG, QD
  4. FORTEO [Suspect]
     Dosage: 20 UG, DAILY (1/D)
     Route: 065
  5. FORTEO [Suspect]
     Dosage: 20 UG, QD
     Route: 065
  6. VITAMIN D [Concomitant]

REACTIONS (18)
  - MUSCLE DISORDER [None]
  - GASTRIC DILATATION [None]
  - PAIN [None]
  - DIZZINESS [None]
  - DRUG DOSE OMISSION [None]
  - INCORRECT STORAGE OF DRUG [None]
  - FALL [None]
  - STOMACH MASS [None]
  - ARTHRALGIA [None]
  - MUSCLE SPASMS [None]
  - ARTHROPATHY [None]
  - GAIT DISTURBANCE [None]
  - FACIAL BONES FRACTURE [None]
  - ABASIA [None]
  - PAIN IN EXTREMITY [None]
  - WRIST FRACTURE [None]
  - UPPER LIMB FRACTURE [None]
  - DRUG PRESCRIBING ERROR [None]
